FAERS Safety Report 4269204-5 (Version None)
Quarter: 2004Q1

REPORT INFORMATION
  Report Type: 
  Country: None (occurrence: None)
  Receive Date: 20040113
  Receipt Date: 20040105
  Transmission Date: 20041129
  Serious: Yes (Hospitalization)
  Sender: FDA-Public Use
  Company Number: FR-GLAXOSMITHKLINE-B0318776A

PATIENT
  Age: 79 Year
  Sex: Male
  Weight: 69 kg

DRUGS (7)
  1. REQUIP [Suspect]
     Indication: PARKINSON'S DISEASE
     Dosage: 2UNIT PER DAY
     Route: 048
  2. MODOPAR [Suspect]
     Indication: PARKINSON'S DISEASE
     Dosage: 8UNIT PER DAY
     Route: 048
  3. DEROXAT [Concomitant]
     Indication: DYSTHYMIC DISORDER
     Dosage: 10MG PER DAY
     Route: 048
  4. STILNOX [Concomitant]
     Indication: DYSTHYMIC DISORDER
     Dosage: 10MG PER DAY
     Route: 048
  5. COMTAN [Concomitant]
     Indication: PARKINSON'S DISEASE
     Route: 048
  6. PLAVIX [Concomitant]
     Indication: CEREBROVASCULAR ACCIDENT PROPHYLAXIS
     Route: 048
  7. PIRACETAM [Concomitant]
     Indication: CEREBROVASCULAR ACCIDENT PROPHYLAXIS
     Route: 048

REACTIONS (3)
  - CONVULSION [None]
  - HYPOTONIA [None]
  - MALAISE [None]
